FAERS Safety Report 5234161-1 (Version None)
Quarter: 2007Q1

REPORT INFORMATION
  Report Type: 
  Country: None (occurrence: None)
  Receive Date: 20070207
  Receipt Date: 20030505
  Transmission Date: 20070707
  Serious: Yes (Life-Threatening, Hospitalization)
  Sender: FDA-Public Use
  Company Number: GXKR2003US01043

PATIENT
  Age: 57 Year
  Sex: Male

DRUGS (6)
  1. GLIBENCLAMIDE (NGX) (GLIBENCLAMIDE) UNKNOWN [Suspect]
     Indication: DIABETES MELLITUS NON-INSULIN-DEPENDENT
     Dosage: 5 MG
  2. HYDROCHLOROTHIAZIDE [Suspect]
     Indication: HYPERTENSION
     Dosage: 25 MG, QD
  3. CELECOXIB (CELECOXIB) [Suspect]
     Indication: OSTEOARTHRITIS
     Dosage: 200 MG
  4. ATENOLOL [Concomitant]
  5. DOCUSATE SODIUM (DOCUSATE SODIUM) [Concomitant]
  6. RANITIDINE [Concomitant]

REACTIONS (4)
  - BLOOD PRESSURE INCREASED [None]
  - DRUG HYPERSENSITIVITY [None]
  - DRUG INTERACTION [None]
  - ERYTHEMA MULTIFORME [None]
